FAERS Safety Report 5009605-0 (Version None)
Quarter: 2006Q2

REPORT INFORMATION
  Report Type: 
  Country: None (occurrence: None)
  Receive Date: 20060522
  Receipt Date: 20060509
  Transmission Date: 20061013
  Serious: Yes (Other)
  Sender: FDA-Public Use
  Company Number: TRP_0739_2006

PATIENT
  Age: 53 Year
  Sex: Female
  Weight: 72.5755 kg

DRUGS (3)
  1. RIBASPHERE [Suspect]
     Indication: HEPATITIS C
     Dosage: 400 MG BID PO
     Route: 048
     Dates: start: 20060203, end: 20060323
  2. PEG-INTRON [Suspect]
     Indication: HEPATITIS C
     Dosage: DF QWK SC
     Route: 058
     Dates: start: 20060203, end: 20060323
  3. BIAXIN [Suspect]
     Dosage: DF

REACTIONS (22)
  - ANAEMIA [None]
  - ASTHENIA [None]
  - CELLULITIS [None]
  - CONDITION AGGRAVATED [None]
  - CRYING [None]
  - DEPRESSION [None]
  - DERMATITIS [None]
  - DYSPNOEA [None]
  - EPISTAXIS [None]
  - ERYTHEMA [None]
  - INCORRECT DOSE ADMINISTERED [None]
  - PLATELET COUNT DECREASED [None]
  - PYREXIA [None]
  - RETINAL ISCHAEMIA [None]
  - SINUS DISORDER [None]
  - SKIN IRRITATION [None]
  - SKIN NODULE [None]
  - SKIN WARM [None]
  - STAPHYLOCOCCAL INFECTION [None]
  - THIRST [None]
  - TREATMENT NONCOMPLIANCE [None]
  - VISUAL DISTURBANCE [None]
